FAERS Safety Report 17099157 (Version 1)
Quarter: 2019Q4

REPORT INFORMATION
  Report Type: Spontaneous
  Country: US (occurrence: US)
  Receive Date: 20191202
  Receipt Date: 20191202
  Transmission Date: 20200122
  Serious: No
  Sender: FDA-Public Use
  Company Number: US-BIOGEN-2018BI00556630

PATIENT
  Age: 58 Year
  Sex: Female
  Weight: 107.14 kg

DRUGS (4)
  1. TECFIDERA [Suspect]
     Active Substance: DIMETHYL FUMARATE
     Route: 050
  2. TECFIDERA [Suspect]
     Active Substance: DIMETHYL FUMARATE
     Indication: MULTIPLE SCLEROSIS
     Dosage: STARTING DOSE
     Route: 050
     Dates: start: 20180403, end: 20190301
  3. TECFIDERA [Suspect]
     Active Substance: DIMETHYL FUMARATE
     Dosage: STARTING DOSE
     Route: 050
  4. TECFIDERA [Suspect]
     Active Substance: DIMETHYL FUMARATE
     Dosage: MIANTENANCE DOSE
     Route: 050

REACTIONS (9)
  - Rheumatoid arthritis [Unknown]
  - Neck pain [Unknown]
  - Lymphopenia [Unknown]
  - Paraesthesia [Unknown]
  - Hypoaesthesia [Unknown]
  - Fall [Unknown]
  - Drug ineffective [Unknown]
  - Pain in extremity [Unknown]
  - Spondylitis [Unknown]

NARRATIVE: CASE EVENT DATE: 20180414
